FAERS Safety Report 10765709 (Version 1)
Quarter: 2015Q1

REPORT INFORMATION
  Report Type: Report from Study
  Country: US (occurrence: CA)
  Receive Date: 20150205
  Receipt Date: 20150205
  Transmission Date: 20150721
  Serious: Yes (Death, Hospitalization)
  Sender: FDA-Public Use
  Company Number: CA-JNJFOC-20150201493

PATIENT
  Sex: Female

DRUGS (2)
  1. TYLENOL EXTRA STRENGTH [Suspect]
     Active Substance: ACETAMINOPHEN
     Indication: PRODUCT USED FOR UNKNOWN INDICATION
     Dosage: 70 TABLETS.
     Route: 048
     Dates: start: 20071010, end: 20071010
  2. ETHANOL [Concomitant]
     Active Substance: ALCOHOL
     Indication: PRODUCT USED FOR UNKNOWN INDICATION
     Route: 065

REACTIONS (8)
  - Cardiac arrest [Fatal]
  - Malnutrition [Unknown]
  - Overdose [Fatal]
  - Arrhythmia [Fatal]
  - Hepatic encephalopathy [Unknown]
  - Hepatic failure [Fatal]
  - Depression [Unknown]
  - Pneumonia aspiration [Unknown]
